FAERS Safety Report 4851228-8 (Version None)
Quarter: 2005Q4

REPORT INFORMATION
  Report Type: 
  Country: None (occurrence: None)
  Receive Date: 20051212
  Receipt Date: 20051201
  Transmission Date: 20060501
  Serious: Yes (Hospitalization)
  Sender: FDA-Public Use
  Company Number: US-JNJFOC-20051200944

PATIENT
  Sex: Female

DRUGS (18)
  1. INFLIXIMAB [Suspect]
     Indication: RHEUMATOID ARTHRITIS
     Route: 042
  2. CLINORIL [Concomitant]
  3. ATIVAN [Concomitant]
  4. LORATADINE [Concomitant]
  5. FLONASE [Concomitant]
  6. IRON SUPPLEMENT [Concomitant]
  7. KIORCON [Concomitant]
  8. METHOTREXATE [Concomitant]
  9. OXYCONTIN [Concomitant]
  10. PREMARIN [Concomitant]
  11. PRILOSEC [Concomitant]
  12. PROVERA [Concomitant]
  13. SOMA [Concomitant]
  14. TYLENOL [Concomitant]
  15. VASOTEC [Concomitant]
  16. CALCIUM+D. [Concomitant]
  17. CALCIUM+D. [Concomitant]
  18. CALCIUM+D. [Concomitant]

REACTIONS (1)
  - CORONARY ARTERY DISEASE [None]
